FAERS Safety Report 7241966-4 (Version None)
Quarter: 2011Q1

REPORT INFORMATION
  Report Type: 
  Country: None (occurrence: None)
  Receive Date: 20110124
  Receipt Date: 20110119
  Transmission Date: 20110831
  Serious: Yes (Death, Hospitalization, Other)
  Sender: FDA-Public Use
  Company Number: US-ASTRAZENECA-2010SE07562

PATIENT
  Age: 1051 Month
  Sex: Female
  Weight: 49.9 kg

DRUGS (8)
  1. PAXIL [Suspect]
  2. MORPHINE [Concomitant]
     Route: 042
  3. XANAX [Concomitant]
  4. DARVOCET [Concomitant]
  5. PERCOCET [Concomitant]
  6. DIURETICS [Concomitant]
  7. BLOOD PRESSURE MEDICATION [Suspect]
  8. SEROQUEL [Suspect]
     Route: 048
     Dates: start: 20091201, end: 20091210

REACTIONS (7)
  - HYPOTENSION [None]
  - OVERDOSE [None]
  - PNEUMONIA ASPIRATION [None]
  - COMA [None]
  - EATING DISORDER [None]
  - SEPTIC SHOCK [None]
  - UNRESPONSIVE TO STIMULI [None]
